FAERS Safety Report 13916931 (Version 1)
Quarter: 2017Q3

REPORT INFORMATION
  Report Type: Not Available
  Country: None (occurrence: US)
  Receive Date: 20170829
  Receipt Date: 20170829
  Transmission Date: 20171127
  Serious: No
  Sender: FDA-Public Use
  Company Number: US-AKORN-64587

PATIENT
  Sex: Female

DRUGS (1)
  1. KETOTIFEN FUMARATE OPHTHALMIC SOLUTION [Suspect]
     Active Substance: KETOTIFEN FUMARATE

REACTIONS (4)
  - Chest discomfort [Recovered/Resolved]
  - Dizziness [Recovered/Resolved]
  - Visual impairment [Recovered/Resolved]
  - Eye pruritus [Recovered/Resolved]
